FAERS Safety Report 4529528-0 (Version None)
Quarter: 2004Q4

REPORT INFORMATION
  Report Type: 
  Country: None (occurrence: None)
  Receive Date: 20041214
  Receipt Date: 20041202
  Transmission Date: 20050328
  Serious: Yes (Death)
  Sender: FDA-Public Use
  Company Number: US-JNJFOC-20041103665

PATIENT
  Age: 71 Year
  Sex: Male

DRUGS (14)
  1. TYLENOL [Suspect]
     Indication: PAIN
     Dosage: 650 MG Q4H PRN
     Dates: start: 20040401
  2. ALBUTEROL [Suspect]
     Indication: PNEUMONIA
     Dosage: 2.5 MG, 1 IN 4 HOUR, INHALATION
     Route: 055
     Dates: start: 20040401, end: 20040401
  3. ATROVENT [Suspect]
     Indication: PNEUMONIA
     Dosage: Q6H
     Dates: start: 20040401, end: 20040401
  4. ROCEPHIN [Suspect]
     Indication: UNEVALUABLE EVENT
     Dosage: 1 G, 1 IN 1 DAYM INTRAVENOUS
     Route: 042
     Dates: start: 20040401, end: 20040401
  5. LISINOPRIL [Concomitant]
  6. HYDROCHLOROTHIAZIDE [Concomitant]
  7. COUMADIN [Concomitant]
  8. ATENOLOL [Concomitant]
  9. BCG VACCINE (BCG VACCINE) [Concomitant]
  10. ATROVENT [Concomitant]
  11. SEREVENT [Concomitant]
  12. AZMACORT [Concomitant]
  13. MULTIVITAMIN (MULTIVITAMIN) [Concomitant]
  14. AVELOX [Suspect]
     Dosage: 400 MG IV
     Route: 042
     Dates: start: 20040401, end: 20040401

REACTIONS (25)
  - APNOEA [None]
  - ATRIAL FIBRILLATION [None]
  - BLOOD GLUCOSE INCREASED [None]
  - BLOOD POTASSIUM DECREASED [None]
  - BLOOD PRESSURE INCREASED [None]
  - BRADYCARDIA [None]
  - CARDIAC FAILURE CONGESTIVE [None]
  - CARDIO-RESPIRATORY ARREST [None]
  - COMA [None]
  - CONFUSIONAL STATE [None]
  - CYANOSIS [None]
  - ELECTROCARDIOGRAM POOR R-WAVE PROGRESSION [None]
  - ELECTROCARDIOGRAM QRS COMPLEX PROLONGED [None]
  - ELECTROCARDIOGRAM T WAVE ABNORMAL [None]
  - ELECTROMECHANICAL DISSOCIATION [None]
  - FAECAL INCONTINENCE [None]
  - FEELING ABNORMAL [None]
  - HAEMOPTYSIS [None]
  - HYPERHIDROSIS [None]
  - MYOCARDIAL INFARCTION [None]
  - PROTHROMBIN TIME SHORTENED [None]
  - PULMONARY OEDEMA [None]
  - PULSE ABSENT [None]
  - RENAL FAILURE [None]
  - THERAPY NON-RESPONDER [None]
